FAERS Safety Report 18972191 (Version 2)
Quarter: 2021Q1

REPORT INFORMATION
  Report Type: Spontaneous
  Country: US (occurrence: US)
  Receive Date: 20210305
  Receipt Date: 20210305
  Transmission Date: 20210420
  Serious: Yes (Hospitalization)
  Sender: FDA-Public Use
  Company Number: US-PROCTER_AND_GAMBLE-PH21001122

PATIENT
  Age: 59 Year
  Sex: Female

DRUGS (1)
  1. CALCIUM CARBONATE, UNSPECIFIED [Suspect]
     Active Substance: CALCIUM CARBONATE
     Dosage: UNK, 10 TABLETS SEVERAL TIMES PER DAY
     Route: 048

REACTIONS (12)
  - Hypertension [Unknown]
  - Hypercalcaemia [Recovered/Resolved]
  - Unresponsive to stimuli [Recovering/Resolving]
  - Blood calcium abnormal [Recovered/Resolved]
  - Reversible cerebral vasoconstriction syndrome [Recovering/Resolving]
  - Mental status changes [Recovering/Resolving]
  - Aphasia [Not Recovered/Not Resolved]
  - Neurological symptom [Recovering/Resolving]
  - Accidental overdose [Unknown]
  - Cerebral infarction [Unknown]
  - Hemiparesis [Not Recovered/Not Resolved]
  - Hemiplegia [Recovering/Resolving]
